FAERS Safety Report 16138549 (Version 6)
Quarter: 2019Q3

REPORT INFORMATION
  Report Type: Spontaneous
  Country: US (occurrence: US)
  Receive Date: 20190330
  Receipt Date: 20190827
  Transmission Date: 20191004
  Serious: Yes (Other)
  Sender: FDA-Public Use
  Company Number: US-ROCHE-2291041

PATIENT
  Age: 55 Year
  Sex: Male

DRUGS (3)
  1. OCREVUS [Suspect]
     Active Substance: OCRELIZUMAB
     Dosage: 3RD INFUSION
     Route: 065
  2. OCREVUS [Suspect]
     Active Substance: OCRELIZUMAB
     Indication: PRIMARY PROGRESSIVE MULTIPLE SCLEROSIS
     Route: 065
     Dates: start: 201707
  3. OCREVUS [Suspect]
     Active Substance: OCRELIZUMAB
     Dosage: 4TH DOSE
     Route: 065
     Dates: start: 201902

REACTIONS (5)
  - JC polyomavirus test positive [Unknown]
  - Influenza [Unknown]
  - Therapeutic response decreased [Unknown]
  - Primary progressive multiple sclerosis [Unknown]
  - Neuralgia [Unknown]
